FAERS Safety Report 16717035 (Version 3)
Quarter: 2019Q3

REPORT INFORMATION
  Report Type: Spontaneous
  Country: MX (occurrence: MX)
  Receive Date: 20190819
  Receipt Date: 20190924
  Transmission Date: 20191005
  Serious: Yes (Other)
  Sender: FDA-Public Use
  Company Number: MX-ASTRAZENECA-2019SE83965

PATIENT
  Age: 749 Month
  Sex: Female
  Weight: 79.3 kg

DRUGS (13)
  1. ALPRAZOLAM. [Concomitant]
     Active Substance: ALPRAZOLAM
     Indication: INSOMNIA
  2. FLUOXETINE [Concomitant]
     Active Substance: FLUOXETINE HYDROCHLORIDE
     Indication: ANXIETY
     Dosage: 1 TABLET EVERY 24 HOURS
     Dates: start: 20190626, end: 201907
  3. OMNILIFE VITAMINS [Concomitant]
  4. INSULIN GLARGINE [Concomitant]
     Active Substance: INSULIN GLARGINE
     Indication: DIABETES MELLITUS
     Route: 058
     Dates: start: 201903
  5. ASPIRIN PROTECT [Concomitant]
     Active Substance: ASPIRIN
     Indication: MYOCARDIAL INFARCTION
     Route: 048
  6. LEVOFLOXACIN. [Concomitant]
     Active Substance: LEVOFLOXACIN
     Route: 065
  7. ATARAX [Concomitant]
     Active Substance: HYDROXYZINE HYDROCHLORIDE
     Indication: DEPRESSION
     Dosage: AS REQUIRED
     Route: 048
     Dates: start: 2009
  8. FORXIGA [Suspect]
     Active Substance: DAPAGLIFLOZIN
     Indication: TYPE 2 DIABETES MELLITUS
     Route: 048
     Dates: start: 201903
  9. INSULIN GLARGINE [Concomitant]
     Active Substance: INSULIN GLARGINE
     Indication: DIABETES MELLITUS
     Dosage: 25.0IU UNKNOWN
  10. FLUONIN [Concomitant]
     Indication: CYSTITIS NONINFECTIVE
     Route: 048
     Dates: start: 20190517
  11. CELEBREX [Concomitant]
     Active Substance: CELECOXIB
     Indication: CYSTITIS NONINFECTIVE
     Route: 048
     Dates: start: 20190517
  12. METFORMIN [Concomitant]
     Active Substance: METFORMIN HYDROCHLORIDE
     Indication: DIABETES MELLITUS
     Route: 048
     Dates: start: 201903
  13. ASPIRIN PROTECT [Concomitant]
     Active Substance: ASPIRIN
     Indication: BLOOD PRESSURE FLUCTUATION
     Route: 048

REACTIONS (17)
  - Diarrhoea [Recovered/Resolved]
  - Nausea [Recovering/Resolving]
  - Urinary incontinence [Recovered/Resolved]
  - Overdose [Not Recovered/Not Resolved]
  - Dizziness [Recovering/Resolving]
  - Blood glucose increased [Not Recovered/Not Resolved]
  - Lethargy [Recovering/Resolving]
  - Dry skin [Recovered/Resolved]
  - Urinary tract infection [Recovered/Resolved]
  - Hypertension [Not Recovered/Not Resolved]
  - Bone pain [Recovered/Resolved]
  - Insomnia [Recovering/Resolving]
  - Myalgia [Recovered/Resolved]
  - Fatigue [Recovering/Resolving]
  - Cystitis [Recovered/Resolved]
  - Headache [Not Recovered/Not Resolved]
  - Pollakiuria [Recovered/Resolved]

NARRATIVE: CASE EVENT DATE: 201903
